FAERS Safety Report 4383016-3 (Version None)
Quarter: 2004Q2

REPORT INFORMATION
  Report Type: 
  Country: None (occurrence: None)
  Receive Date: 20040526
  Receipt Date: 20040108
  Transmission Date: 20050107
  Serious: Yes (Hospitalization)
  Sender: FDA-Public Use
  Company Number: US_010769970

PATIENT
  Age: 38 Year
  Sex: Male
  Weight: 89 kg

DRUGS (5)
  1. PROZAC [Suspect]
     Indication: DEPRESSION
     Dosage: 40 MG/DAY
     Dates: start: 19921101
  2. PROZAC [Suspect]
     Indication: OBSESSIVE-COMPULSIVE DISORDER
     Dosage: 40 MG/DAY
     Dates: start: 19921101
  3. PROZAC WEEKLY [Suspect]
     Indication: DEPRESSION
     Dosage: 90 MG/1 WEEK
     Dates: start: 20020101
  4. ZYPREXA [Suspect]
     Indication: SCHIZOPHRENIA
     Dosage: 15 MG/DAY
     Dates: start: 20021218
  5. RISPERDAL [Concomitant]

REACTIONS (6)
  - ASTHENIA [None]
  - DEPRESSION [None]
  - DRUG EFFECT DECREASED [None]
  - DRUG INEFFECTIVE [None]
  - SCHIZOPHRENIA [None]
  - SOMNOLENCE [None]
